FAERS Safety Report 21579328 (Version 1)
Quarter: 2022Q4

REPORT INFORMATION
  Report Type: Spontaneous
  Country: US (occurrence: None)
  Receive Date: 20221110
  Receipt Date: 20221110
  Transmission Date: 20230112
  Serious: Yes (Death)
  Sender: FDA-Public Use
  Company Number: None

PATIENT
  Age: 72 Year
  Sex: Male
  Weight: 83.25 kg

DRUGS (5)
  1. REVLIMID [Suspect]
     Active Substance: LENALIDOMIDE
     Indication: 5q minus syndrome
     Dosage: FREQUENCY : DAILY;?
     Route: 048
     Dates: start: 20220726, end: 20221105
  2. carbidopa 10mg levodopa 100mg [Concomitant]
  3. melatonin 10mg [Concomitant]
  4. VITAMINS [Concomitant]
     Active Substance: VITAMINS
  5. odanestron 8mg [Concomitant]

REACTIONS (1)
  - Death [None]

NARRATIVE: CASE EVENT DATE: 20221105
